FAERS Safety Report 7582047 (Version 4)
Quarter: 2013Q3

REPORT INFORMATION
  Report Type: Spontaneous
  Country: US (occurrence: US)
  Receive Date: 20100913
  Receipt Date: 20130730
  Transmission Date: 20140515
  Serious: Yes (Other)
  Sender: FDA-Public Use
  Company Number: US-JNJFOC-20100901804

PATIENT
  Age: 66 Year
  Sex: Male
  Weight: 88 kg

DRUGS (14)
  1. REMICADE [Suspect]
     Indication: CROHN^S DISEASE
     Route: 042
     Dates: start: 20081027
  2. REMICADE [Suspect]
     Indication: CROHN^S DISEASE
     Route: 042
     Dates: start: 20090616
  3. REMICADE [Suspect]
     Indication: CROHN^S DISEASE
     Dosage: APPROXIMATELY THE PATIENT RECEIEVD 12TH INFUSION.
     Route: 042
     Dates: start: 20100120
  4. REMICADE [Suspect]
     Indication: CROHN^S DISEASE
     Route: 042
     Dates: start: 20100901, end: 20100901
  5. MONOPRIL [Concomitant]
     Indication: HYPERTENSION
     Route: 065
  6. NORVASC [Concomitant]
     Indication: HYPERTENSION
     Route: 065
  7. PRAVASTATIN [Concomitant]
     Indication: BLOOD CHOLESTEROL ABNORMAL
     Route: 065
  8. ASPIRIN [Concomitant]
     Indication: PROPHYLAXIS
     Route: 065
  9. NEXIUM [Concomitant]
     Indication: GASTROOESOPHAGEAL REFLUX DISEASE
     Route: 065
  10. COENZYME Q10 [Concomitant]
  11. BENADRYL [Concomitant]
     Indication: PREMEDICATION
     Route: 048
     Dates: start: 20100901
  12. PREDNISONE [Concomitant]
     Indication: PREMEDICATION
     Route: 048
     Dates: start: 20100901
  13. TYLENOL [Concomitant]
     Indication: PREMEDICATION
     Route: 048
     Dates: start: 20100901
  14. SYNTHROID [Concomitant]
     Indication: HYPOTHYROIDISM
     Route: 065

REACTIONS (17)
  - Chest pain [Recovered/Resolved]
  - Respiratory rate increased [Recovered/Resolved]
  - Heart rate increased [Recovered/Resolved]
  - Paraesthesia [Not Recovered/Not Resolved]
  - Infusion related reaction [Not Recovered/Not Resolved]
  - Rash [Not Recovered/Not Resolved]
  - Pruritus [Not Recovered/Not Resolved]
  - Neck pain [Recovered/Resolved]
  - Headache [Recovered/Resolved]
  - Arthralgia [Recovered/Resolved]
  - Back pain [Not Recovered/Not Resolved]
  - Myalgia [Recovered/Resolved]
  - Hypertension [Recovered/Resolved]
  - Nausea [Recovered/Resolved]
  - Muscle spasms [Unknown]
  - Diarrhoea [Unknown]
  - Eructation [Recovered/Resolved]
